FAERS Safety Report 16296244 (Version 1)
Quarter: 2019Q2

REPORT INFORMATION
  Report Type: Spontaneous
  Country: DE (occurrence: DE)
  Receive Date: 20190510
  Receipt Date: 20190510
  Transmission Date: 20190711
  Serious: Yes (Life-Threatening, Hospitalization)
  Sender: FDA-Public Use
  Company Number: DE-ROCHE-2314579

PATIENT
  Age: 69 Year
  Sex: Female

DRUGS (33)
  1. RITUXIMAB. [Suspect]
     Active Substance: RITUXIMAB
     Indication: B-CELL LYMPHOMA
     Route: 041
     Dates: start: 20160620, end: 20160620
  2. BENZBROMARONE [Concomitant]
     Active Substance: BENZBROMARONE
     Indication: HYPERURICAEMIA
     Dosage: 100 MILLIGRAM, QD (1 IN 1 D)
     Route: 048
     Dates: start: 20160621
  3. DIMETINDENE MALEATE [Concomitant]
     Active Substance: DIMETHINDENE MALEATE
     Dosage: UNK, QD (1 AMPULE (1 IN 1 D))
     Route: 042
     Dates: start: 20160606, end: 20160620
  4. LEVOTHYROXINE SODIUM. [Concomitant]
     Active Substance: LEVOTHYROXINE SODIUM
     Indication: HYPERTHYROIDISM
     Dosage: 100 MICROGRAM, QD (L IN 1 D)
     Route: 048
     Dates: start: 20160606
  5. DOXORUBICINE [DOXORUBICIN] [Suspect]
     Active Substance: DOXORUBICIN
     Dosage: 100 MILLIGRAM, QD (1 IN 1 D)
     Route: 042
     Dates: start: 20160621, end: 20160621
  6. FUROSEMIDE. [Concomitant]
     Active Substance: FUROSEMIDE
     Indication: POLYURIA
     Dosage: 20 MILLIGRAM, QD (1 IN 1 D)
     Route: 042
     Dates: start: 20160607, end: 20160622
  7. PARACETAMOL [Concomitant]
     Active Substance: ACETAMINOPHEN
     Dosage: 1 GRAM, QD (1 IN 1 D)
     Route: 048
     Dates: start: 20160606, end: 20160620
  8. ACICLOVIR [Concomitant]
     Active Substance: ACYCLOVIR
     Dosage: 400 MILLIGRAM (FOR 3 DAYS)
     Route: 048
     Dates: start: 20160607, end: 20160609
  9. DIGITOXINE [Concomitant]
     Dosage: 1 MILLIGRAM, QD (1 IN 1 D)
     Route: 048
     Dates: start: 20160606, end: 20160609
  10. CYCLOPHOSPHAMIDE. [Suspect]
     Active Substance: CYCLOPHOSPHAMIDE
     Dosage: 1500 MILLIGRAM, QD  (1 IN 1 D)
     Route: 042
     Dates: start: 20160621, end: 20160621
  11. ALLOPURINOL. [Concomitant]
     Active Substance: ALLOPURINOL
     Dosage: 100 MILLIGRAM (1 IN 1 D)
     Route: 048
     Dates: start: 20160607, end: 20160609
  12. FUROSEMIDE. [Concomitant]
     Active Substance: FUROSEMIDE
     Dosage: UNK, QD (FOR 1 DAY (1 IN 1 D))
     Route: 042
     Dates: start: 20160607, end: 20160622
  13. KALIUM CHLORID [Concomitant]
     Active Substance: POTASSIUM CHLORIDE
     Dosage: UNK, QD
     Route: 048
     Dates: start: 20160607, end: 20160608
  14. VINCRISTINE [Suspect]
     Active Substance: VINCRISTINE
     Dosage: 2 MILLIGRAM, QD (1 IN 1 D)
     Route: 042
     Dates: start: 20160621, end: 20160621
  15. PEGFILGRASTIM [Suspect]
     Active Substance: PEGFILGRASTIM
     Route: 058
     Dates: start: 20160624, end: 20160624
  16. METOCLOPRAMIDE. [Concomitant]
     Active Substance: METOCLOPRAMIDE
     Indication: NAUSEA
     Dosage: UNK, QD (1-3 MG (1 IN 1 D))
     Route: 065
     Dates: start: 20160608, end: 20160609
  17. FUROSEMIDE. [Concomitant]
     Active Substance: FUROSEMIDE
     Dosage: UNK, QD (FOR 2 DAYS (1 IN 1 D))
     Route: 042
     Dates: start: 20160607, end: 20160622
  18. RANITIDINE. [Concomitant]
     Active Substance: RANITIDINE
     Dosage: UNK, QD (1 AMPULE (1 IN 1 D))
     Route: 042
     Dates: start: 20160606, end: 20160620
  19. SODIUM CHLORIDE. [Concomitant]
     Active Substance: SODIUM CHLORIDE
     Dosage: 1000 MILLILITER, QD (1 IN 1 D)
     Route: 042
     Dates: start: 20160620, end: 20160621
  20. METOPROLOL. [Concomitant]
     Active Substance: METOPROLOL
     Dosage: 100 MILLIGRAM, BID (2 IN 1 D)
     Route: 048
     Dates: start: 20160606
  21. TINZAPARIN [Concomitant]
     Active Substance: TINZAPARIN
     Indication: ATRIAL FIBRILLATION
     Dosage: 1 MILLILITER, QD (1 IN 1 D)
     Route: 058
     Dates: start: 20160607
  22. ONDANSETRON [Concomitant]
     Active Substance: ONDANSETRON
     Indication: PROPHYLAXIS OF NAUSEA AND VOMITING
     Dosage: 8 MILLIGRAM, BID (2 IN 1 D)
     Route: 060
     Dates: start: 20160607, end: 20160622
  23. PEGFILGRASTIM [Suspect]
     Active Substance: PEGFILGRASTIM
     Indication: B-CELL LYMPHOMA
     Route: 058
     Dates: start: 20160527, end: 20160527
  24. PREDNISOLON [PREDNISOLONE] [Suspect]
     Active Substance: PREDNISOLONE
     Dosage: 100 MILLIGRAM, QD (1 IN 1 D)
     Route: 042
     Dates: start: 20160606, end: 20160606
  25. PREDNISOLON [PREDNISOLONE] [Suspect]
     Active Substance: PREDNISOLONE
     Dosage: 100 MILLIGRAM, QD (1 IN 1 D)
     Route: 048
     Dates: start: 20160621, end: 20160625
  26. CYCLOPHOSPHAMIDE. [Suspect]
     Active Substance: CYCLOPHOSPHAMIDE
     Indication: B-CELL LYMPHOMA
     Dosage: DOSE: 1
     Route: 042
     Dates: start: 20160607, end: 20160607
  27. DOXORUBICINE [DOXORUBICIN] [Suspect]
     Active Substance: DOXORUBICIN
     Indication: B-CELL LYMPHOMA
     Dosage: DOSE: 1
     Route: 042
     Dates: start: 20160607, end: 20160607
  28. VINCRISTINE [Suspect]
     Active Substance: VINCRISTINE
     Indication: B-CELL LYMPHOMA
     Dosage: DOSE: 1
     Route: 042
     Dates: start: 20160607, end: 20160607
  29. KALIUM CHLORID [Concomitant]
     Active Substance: POTASSIUM CHLORIDE
     Indication: HYPOKALAEMIA
     Dosage: 600 MILLIGRAM, TID
     Route: 048
     Dates: start: 20160620, end: 20160623
  30. RED BLOOD CELLS [Concomitant]
     Active Substance: HUMAN RED BLOOD CELL
     Indication: ANAEMIA
     Dosage: UNK, QD (2 PACKS (1 IN 1 D))
     Route: 058
     Dates: start: 20160608, end: 20160623
  31. RITUXIMAB. [Suspect]
     Active Substance: RITUXIMAB
     Route: 042
     Dates: start: 20160606, end: 20160606
  32. PREDNISOLON [PREDNISOLONE] [Suspect]
     Active Substance: PREDNISOLONE
     Indication: B-CELL LYMPHOMA
     Dosage: DOSE: 1
     Route: 048
     Dates: start: 20160607
  33. SULFAMETHOXAZOLE/TRIMETHOPRIM [Concomitant]
     Active Substance: SULFAMETHOXAZOLE\TRIMETHOPRIM
     Dosage: 960 MILLIGRAM, 2 TIMES/WK
     Route: 048
     Dates: start: 20160606

REACTIONS (5)
  - C-reactive protein abnormal [Unknown]
  - Sepsis [Recovered/Resolved]
  - Arrhythmia [Unknown]
  - Blood creatinine increased [Unknown]
  - Acute kidney injury [Recovered/Resolved]

NARRATIVE: CASE EVENT DATE: 20160607
